FAERS Safety Report 25105990 (Version 1)
Quarter: 2025Q1

REPORT INFORMATION
  Report Type: Report from Study
  Country: JP (occurrence: JP)
  Receive Date: 20250321
  Receipt Date: 20250321
  Transmission Date: 20250409
  Serious: Yes (Other)
  Sender: AMERICAN REGENT
  Company Number: JP-AMERICAN REGENT INC-2025001139

PATIENT
  Age: 53 Year
  Sex: Female
  Weight: 39.7 kg

DRUGS (5)
  1. FERINJECT [Suspect]
     Active Substance: FERRIC CARBOXYMALTOSE
     Indication: Iron deficiency anaemia
     Route: 041
     Dates: start: 20241010, end: 20241010
  2. FERINJECT [Suspect]
     Active Substance: FERRIC CARBOXYMALTOSE
     Route: 041
     Dates: start: 20241017, end: 20241017
  3. FERINJECT [Suspect]
     Active Substance: FERRIC CARBOXYMALTOSE
     Route: 041
     Dates: start: 20241024, end: 20241024
  4. AMINO ACIDS\DEXTROSE\ELECTROLYTES NOS\VITAMINS [Concomitant]
     Active Substance: AMINO ACIDS\DEXTROSE\ELECTROLYTES NOS\VITAMINS
     Indication: Product used for unknown indication
     Route: 065
     Dates: start: 20241030
  5. OMEPRAZOLE [Concomitant]
     Active Substance: OMEPRAZOLE
     Indication: Product used for unknown indication
     Route: 065
     Dates: start: 20241010

REACTIONS (2)
  - Hyperferritinaemia [Recovering/Resolving]
  - Hypophosphataemia [Recovering/Resolving]

NARRATIVE: CASE EVENT DATE: 20241017
